FAERS Safety Report 14689150 (Version 1)
Quarter: 2018Q1

REPORT INFORMATION
  Report Type: Spontaneous
  Country: US (occurrence: US)
  Receive Date: 20180328
  Receipt Date: 20180328
  Transmission Date: 20180509
  Serious: No
  Sender: FDA-Public Use
  Company Number: US-GLAXOSMITHKLINE-US2018049759

PATIENT
  Age: 49 Year
  Sex: Female

DRUGS (16)
  1. BENLYSTA [Suspect]
     Active Substance: BELIMUMAB
     Indication: SYSTEMIC LUPUS ERYTHEMATOSUS
     Dosage: UNK UNK, CYC
     Dates: start: 2015
  2. AMOXICILLIN. [Concomitant]
     Active Substance: AMOXICILLIN
  3. DOMPERIDONE [Concomitant]
     Active Substance: DOMPERIDONE
  4. ZYRTEC [Concomitant]
     Active Substance: CETIRIZINE HYDROCHLORIDE
  5. PREMARIN [Concomitant]
     Active Substance: ESTROGENS, CONJUGATED
  6. LIOTHYRONINE [Concomitant]
     Active Substance: LIOTHYRONINE
  7. NEXIUM [Concomitant]
     Active Substance: ESOMEPRAZOLE MAGNESIUM
  8. TRAZODONE [Concomitant]
     Active Substance: TRAZODONE HYDROCHLORIDE
  9. HYDROXYCHLOROQUINE [Concomitant]
     Active Substance: HYDROXYCHLOROQUINE
  10. APRISO [Concomitant]
     Active Substance: MESALAMINE
  11. KEFLEX [Concomitant]
     Active Substance: CEPHALEXIN
  12. PROPANOLOL [Concomitant]
     Active Substance: PROPRANOLOL HYDROCHLORIDE
  13. UCERIS [Concomitant]
     Active Substance: BUDESONIDE
  14. RANITIDINE. [Concomitant]
     Active Substance: RANITIDINE
  15. SYNTHROID [Concomitant]
     Active Substance: LEVOTHYROXINE SODIUM
  16. BENLYSTA [Suspect]
     Active Substance: BELIMUMAB
     Dosage: 200 MG, CYC

REACTIONS (5)
  - Drug dose omission [Unknown]
  - Product storage error [Unknown]
  - Ill-defined disorder [Unknown]
  - Tooth extraction [Recovered/Resolved]
  - Dental implantation [Recovered/Resolved]

NARRATIVE: CASE EVENT DATE: 20151115
